FAERS Safety Report 14371455 (Version 1)
Quarter: 2018Q1

REPORT INFORMATION
  Report Type: Spontaneous
  Country: US (occurrence: US)
  Receive Date: 20180110
  Receipt Date: 20180110
  Transmission Date: 20180509
  Serious: No
  Sender: FDA-Public Use
  Company Number: US-BEH-2018086452

PATIENT
  Age: 45 Year
  Sex: Female
  Weight: 99.77 kg

DRUGS (9)
  1. MOTRIN [Concomitant]
     Active Substance: IBUPROFEN
     Route: 065
  2. EPINEPHRINE. [Concomitant]
     Active Substance: EPINEPHRINE
     Route: 065
  3. BERINERT [Suspect]
     Active Substance: HUMAN C1-ESTERASE INHIBITOR
     Indication: PROPHYLAXIS
     Dosage: UNK
     Route: 042
  4. DANAZOL. [Concomitant]
     Active Substance: DANAZOL
     Route: 065
  5. CINRYZE [Concomitant]
     Active Substance: HUMAN C1-ESTERASE INHIBITOR
     Route: 065
  6. NORCO [Concomitant]
     Active Substance: ACETAMINOPHEN\HYDROCODONE BITARTRATE
     Route: 065
  7. BERINERT [Suspect]
     Active Substance: HUMAN C1-ESTERASE INHIBITOR
     Indication: HEREDITARY ANGIOEDEMA
     Dosage: 1000 IU, FOUR TIMES PER WEEK
     Route: 042
     Dates: start: 20170915
  8. SODIUM CHLORIDE. [Concomitant]
     Active Substance: SODIUM CHLORIDE
     Route: 065
  9. STERILE WATER [Concomitant]
     Active Substance: WATER
     Route: 065

REACTIONS (1)
  - Sinusitis [Unknown]

NARRATIVE: CASE EVENT DATE: 20180101
